FAERS Safety Report 6138681-7 (Version None)
Quarter: 2009Q1

REPORT INFORMATION
  Report Type: 
  Country: None (occurrence: None)
  Receive Date: 20090327
  Receipt Date: 20090306
  Transmission Date: 20090719
  Serious: Yes (Other)
  Sender: FDA-Public Use
  Company Number: 2009EU000967

PATIENT
  Age: 73 Year
  Sex: Male

DRUGS (4)
  1. TACROLIMUS [Suspect]
     Dosage: 7 MG, UNKNOWN/D
     Dates: start: 20080501
  2. AMIODARONE (AMIODARONE) [Concomitant]
  3. PREDNISOLONE [Concomitant]
  4. CYCLOSPORINE [Concomitant]

REACTIONS (2)
  - DRUG INTERACTION [None]
  - DRUG LEVEL INCREASED [None]
